FAERS Safety Report 7182939-X (Version None)
Quarter: 2010Q4

REPORT INFORMATION
  Report Type: 
  Country: None (occurrence: None)
  Receive Date: 20101222
  Receipt Date: 20101214
  Transmission Date: 20110411
  Serious: Yes (Hospitalization)
  Sender: FDA-Public Use
  Company Number: AU-SOLVAY-00210007446

PATIENT
  Age: 61 Year
  Sex: Male

DRUGS (4)
  1. ALLOPURINOL [Suspect]
     Indication: GOUT
     Dosage: DAILY DOSE:  UNKNOWN
     Route: 065
  2. LEVOTHYROXINE SODIUM [Suspect]
     Indication: HYPOTHYROIDISM
     Dosage: DAILY DOSE:  UNKNOWN
     Route: 065
  3. SALBUTAMOL [Suspect]
     Indication: ASTHMA
     Dosage: DAILY DOSE:  UNKNOWN
     Route: 065
  4. PERINDOPRIL [Suspect]
     Indication: HYPERTENSION
     Dosage: DAILY DOSE:  UNKNOWN
     Route: 065

REACTIONS (3)
  - PNEUMONIA LEGIONELLA [None]
  - RENAL FAILURE ACUTE [None]
  - RHABDOMYOLYSIS [None]
